FAERS Safety Report 5106555-6 (Version None)
Quarter: 2006Q3

REPORT INFORMATION
  Report Type: 
  Country: None (occurrence: None)
  Receive Date: 20060918
  Receipt Date: 20060824
  Transmission Date: 20061208
  Serious: Yes (Hospitalization)
  Sender: FDA-Public Use
  Company Number: FR-GLAXOSMITHKLINE-B0435820A

PATIENT
  Age: 47 Year
  Sex: Female
  Weight: 55 kg

DRUGS (3)
  1. MYLERAN [Suspect]
     Indication: ACUTE LEUKAEMIA
     Dosage: 8MG PER DAY
     Route: 048
     Dates: start: 20010126, end: 20010130
  2. ALKERAN [Suspect]
     Indication: ACUTE LEUKAEMIA
     Dosage: 230MG PER DAY
     Route: 042
     Dates: start: 20010126, end: 20010130
  3. MELPHALAN [Concomitant]
     Indication: ACUTE LEUKAEMIA
     Route: 065
     Dates: start: 20060131, end: 20060201

REACTIONS (7)
  - ATELECTASIS [None]
  - DRUG TOXICITY [None]
  - DYSPNOEA [None]
  - LUNG CYST BENIGN [None]
  - LUNG INFILTRATION [None]
  - OBSTRUCTIVE AIRWAYS DISORDER [None]
  - PULMONARY FIBROSIS [None]
